FAERS Safety Report 24383079 (Version 1)
Quarter: 2024Q4

REPORT INFORMATION
  Report Type: Other
  Country: CN (occurrence: CN)
  Receive Date: 20241001
  Receipt Date: 20241001
  Transmission Date: 20250114
  Serious: Yes (Death, Hospitalization, Other)
  Sender: PL DEVELOPMENTS
  Company Number: CN-P+L Developments of Newyork Corporation-2162253

PATIENT
  Age: 82 Year
  Sex: Female

DRUGS (9)
  1. FAMOTIDINE [Suspect]
     Active Substance: FAMOTIDINE
     Indication: Abdominal discomfort
  2. QUETIAPINE [Interacting]
     Active Substance: QUETIAPINE
  3. ACETAMINOPHEN\TRAMADOL [Concomitant]
     Active Substance: ACETAMINOPHEN\TRAMADOL
  4. SODIUM BICARBONATE [Concomitant]
     Active Substance: SODIUM BICARBONATE
  5. FERROUS CITRATE [Concomitant]
     Active Substance: FERROUS CITRATE
  6. METHOXY POLYETHYLENE GLYCOL-EPOETIN BETA [Concomitant]
     Active Substance: METHOXY POLYETHYLENE GLYCOL-EPOETIN BETA
  7. FOLIC ACID [Concomitant]
     Active Substance: FOLIC ACID
  8. ACETAMINOPHEN [Concomitant]
     Active Substance: ACETAMINOPHEN
  9. AMLODIPINE [Concomitant]
     Active Substance: AMLODIPINE BESYLATE

REACTIONS (2)
  - SJS-TEN overlap [Fatal]
  - Drug interaction [Fatal]
